FAERS Safety Report 13691672 (Version 1)
Quarter: 2017Q2

REPORT INFORMATION
  Report Type: Spontaneous
  Country: GB (occurrence: GB)
  Receive Date: 20170626
  Receipt Date: 20170626
  Transmission Date: 20170830
  Serious: Yes (Other)
  Sender: FDA-Public Use
  Company Number: GB-TEVA-778984ACC

PATIENT
  Age: 22 Year
  Sex: Female
  Weight: 86 kg

DRUGS (4)
  1. CLARITHROMYCIN. [Concomitant]
     Active Substance: CLARITHROMYCIN
     Dosage: 2 DOSAGE FORMS DAILY;
     Dates: start: 20170526
  2. ERYTHROMYCIN. [Concomitant]
     Active Substance: ERYTHROMYCIN
     Dosage: 4 DOSAGE FORMS DAILY;
     Dates: start: 20170315, end: 20170322
  3. CYCLIZINE [Concomitant]
     Active Substance: CYCLIZINE
     Dosage: 3 DOSAGE FORMS DAILY; BEFORE MEALS
     Dates: start: 20170526
  4. DOXYCYCLINE. [Suspect]
     Active Substance: DOXYCYCLINE
     Dates: start: 20170526

REACTIONS (2)
  - Abdominal pain [Unknown]
  - Vomiting [Recovering/Resolving]

NARRATIVE: CASE EVENT DATE: 20170526
